FAERS Safety Report 20552786 (Version 1)
Quarter: 2022Q1

REPORT INFORMATION
  Report Type: Spontaneous
  Country: US (occurrence: None)
  Receive Date: 20220304
  Receipt Date: 20220304
  Transmission Date: 20220424
  Serious: No
  Sender: FDA-Public Use
  Company Number: 2022A057193

PATIENT
  Age: 759 Month
  Sex: Male

DRUGS (2)
  1. BYDUREON BCISE [Suspect]
     Active Substance: EXENATIDE
     Indication: Type 2 diabetes mellitus
     Route: 058
     Dates: start: 2021
  2. BYDUREON [Suspect]
     Active Substance: EXENATIDE
     Indication: Type 2 diabetes mellitus
     Route: 058
     Dates: end: 2021

REACTIONS (6)
  - Asthenia [Unknown]
  - Blood glucose increased [Unknown]
  - Device malfunction [Unknown]
  - Incorrect dose administered by device [Unknown]
  - Wrong technique in device usage process [Unknown]
  - Device use issue [Unknown]

NARRATIVE: CASE EVENT DATE: 20220101
